FAERS Safety Report 8201688-X (Version None)
Quarter: 2012Q1

REPORT INFORMATION
  Report Type: 
  Country: None (occurrence: None)
  Receive Date: 20120308
  Receipt Date: 20120221
  Transmission Date: 20120608
  Serious: Yes (Hospitalization)
  Sender: FDA-Public Use
  Company Number: SAN_00048_2012

PATIENT
  Age: 72 Year
  Sex: Female

DRUGS (1)
  1. METFORMIN HCL [Suspect]
     Indication: TYPE 2 DIABETES MELLITUS
     Dosage: (DF)

REACTIONS (6)
  - VOMITING [None]
  - HYPOGLYCAEMIC COMA [None]
  - LACTIC ACIDOSIS [None]
  - RENAL FAILURE ACUTE [None]
  - HYPOTHERMIA [None]
  - CONTINUOUS HAEMODIAFILTRATION [None]
